FAERS Safety Report 13480368 (Version 1)
Quarter: 2017Q2

REPORT INFORMATION
  Report Type: Spontaneous
  Country: FR (occurrence: FR)
  Receive Date: 20170425
  Receipt Date: 20170425
  Transmission Date: 20170830
  Serious: Yes (Other)
  Sender: FDA-Public Use
  Company Number: FR-ALLERGAN-1715660US

PATIENT
  Age: 30 Year
  Sex: Female

DRUGS (7)
  1. GELTIM LP [Concomitant]
     Active Substance: TIMOLOL MALEATE
     Indication: PRODUCT USED FOR UNKNOWN INDICATION
     Route: 047
  2. CARTEOL [Concomitant]
     Active Substance: CARTEOLOL
     Indication: PRODUCT USED FOR UNKNOWN INDICATION
     Route: 047
  3. XALATAN [Concomitant]
     Active Substance: LATANOPROST
     Indication: PRODUCT USED FOR UNKNOWN INDICATION
     Route: 047
  4. MONOPROST [Concomitant]
     Active Substance: LATANOPROST
     Indication: PRODUCT USED FOR UNKNOWN INDICATION
     Route: 047
  5. OPHTIM [Concomitant]
     Indication: PRODUCT USED FOR UNKNOWN INDICATION
     Route: 047
  6. AZOPT [Concomitant]
     Active Substance: BRINZOLAMIDE
     Indication: PRODUCT USED FOR UNKNOWN INDICATION
     Route: 047
  7. LUMIGAN [Suspect]
     Active Substance: BIMATOPROST
     Indication: OCULAR HYPERTENSION
     Route: 047

REACTIONS (14)
  - Vertigo [Recovered/Resolved]
  - Hypotension [Unknown]
  - Dyspnoea [Recovering/Resolving]
  - Apnoea [Unknown]
  - Palpitations [Unknown]
  - Vomiting [Unknown]
  - Eye pain [Unknown]
  - Nasal obstruction [Unknown]
  - Asthenia [Unknown]
  - Asphyxia [Unknown]
  - Chest pain [Recovering/Resolving]
  - Pituitary tumour benign [Unknown]
  - Mitral valve disease [Unknown]
  - Headache [Unknown]

NARRATIVE: CASE EVENT DATE: 2008
